FAERS Safety Report 4643451-2 (Version None)
Quarter: 2005Q2

REPORT INFORMATION
  Report Type: 
  Country: None (occurrence: None)
  Receive Date: 20050420
  Receipt Date: 20050420
  Transmission Date: 20051028
  Serious: Yes (Hospitalization)
  Sender: FDA-Public Use
  Company Number: None

PATIENT
  Sex: Male

DRUGS (10)
  1. FLUDARABINE PHOSPHATE [Suspect]
     Indication: ACUTE MYELOID LEUKAEMIA
     Dosage: 70 MG, IV, DAILY,
     Route: 042
     Dates: start: 20040607, end: 20040611
  2. MELPHALAN [Suspect]
     Indication: HAEMATOPOIETIC STEM CELL MOBILISATION
     Dosage: 320MG, IV DAILY
     Route: 042
     Dates: start: 20040612
  3. MELPHALAN [Suspect]
     Indication: STEM CELL TRANSPLANT
     Dosage: 320MG, IV DAILY
     Route: 042
     Dates: start: 20040612
  4. CAMPATH [Suspect]
     Dosage: 20MG  IV  DAILY
     Route: 042
     Dates: start: 20040607, end: 20040611
  5. BACTRIM [Concomitant]
  6. ACYCLOVIR [Concomitant]
  7. PREDNISON [Concomitant]
  8. DIFLUCAN [Concomitant]
  9. PEPCID [Concomitant]
  10. COUMADIN [Concomitant]

REACTIONS (7)
  - BACTERIAL INFECTION [None]
  - BRONCHIAL OBSTRUCTION [None]
  - BRONCHIECTASIS [None]
  - COMPUTERISED TOMOGRAM ABNORMAL [None]
  - LUNG INFECTION [None]
  - MYCOBACTERIAL INFECTION [None]
  - PULMONARY GRANULOMA [None]
